FAERS Safety Report 17549113 (Version 1)
Quarter: 2020Q1

REPORT INFORMATION
  Report Type: Spontaneous
  Country: US (occurrence: US)
  Receive Date: 20200317
  Receipt Date: 20200317
  Transmission Date: 20200409
  Serious: No
  Sender: FDA-Public Use
  Company Number: US-BAYER-2020-045837

PATIENT
  Age: 4 Year
  Sex: Male

DRUGS (4)
  1. CHILDREN MULTIVITAMINS [Concomitant]
  2. FIBER [Concomitant]
     Active Substance: PSYLLIUM HUSK
     Dosage: UNK
  3. ELDERBERRY [SAMBUCUS NIGRA FRUIT] [Concomitant]
     Dosage: UNK
  4. CLARITIN [Suspect]
     Active Substance: LORATADINE
     Indication: NUTRITIONAL SUPPLEMENTATION
     Dosage: 2 DF
     Route: 048

REACTIONS (1)
  - Accidental exposure to product by child [Unknown]
